FAERS Safety Report 5952092-6 (Version None)
Quarter: 2008Q4

REPORT INFORMATION
  Report Type: 
  Country: None (occurrence: None)
  Receive Date: 20081113
  Receipt Date: 20080328
  Transmission Date: 20090506
  Serious: No
  Sender: FDA-Public Use
  Company Number: A0718095A

PATIENT
  Age: 42 Year
  Sex: Female

DRUGS (4)
  1. COREG [Suspect]
     Route: 048
  2. INSULIN [Concomitant]
  3. METFORMIN HCL [Concomitant]
  4. BYETTA [Concomitant]

REACTIONS (2)
  - INSOMNIA [None]
  - PRODUCT QUALITY ISSUE [None]
